FAERS Safety Report 16817400 (Version 1)
Quarter: 2019Q3

REPORT INFORMATION
  Report Type: Spontaneous
  Country: GB (occurrence: GB)
  Receive Date: 20190917
  Receipt Date: 20190917
  Transmission Date: 20191005
  Serious: Yes (Life-Threatening, Hospitalization)
  Sender: FDA-Public Use
  Company Number: GB-TEVA-2019-GB-1106985

PATIENT
  Age: 76 Year
  Sex: Male
  Weight: 78.01 kg

DRUGS (9)
  1. ENALAPRIL [Concomitant]
     Active Substance: ENALAPRIL
  2. FUROSEMIDE. [Concomitant]
     Active Substance: FUROSEMIDE
  3. HYDROXYCARBAMIDE [Concomitant]
     Active Substance: HYDROXYUREA
  4. PREDNISOLONE. [Suspect]
     Active Substance: PREDNISOLONE
     Indication: LOWER RESPIRATORY TRACT INFECTION
     Route: 048
     Dates: start: 20190725, end: 20190801
  5. SALBUTAMOL [Concomitant]
     Active Substance: ALBUTEROL
  6. SOLIFENACIN [Concomitant]
     Active Substance: SOLIFENACIN
  7. TAMSULOSIN [Concomitant]
     Active Substance: TAMSULOSIN
  8. WARFARIN [Concomitant]
     Active Substance: WARFARIN
  9. TRELEGY ELLIPTA [Concomitant]
     Active Substance: FLUTICASONE FUROATE\UMECLIDINIUM BROMIDE\VILANTEROL TRIFENATATE

REACTIONS (2)
  - Psychotic disorder [Not Recovered/Not Resolved]
  - Suicide attempt [Not Recovered/Not Resolved]

NARRATIVE: CASE EVENT DATE: 20190813
